FAERS Safety Report 17472214 (Version 1)
Quarter: 2020Q1

REPORT INFORMATION
  Report Type: Spontaneous
  Country: JP (occurrence: JP)
  Receive Date: 20200228
  Receipt Date: 20200228
  Transmission Date: 20200409
  Serious: Yes (Other)
  Sender: FDA-Public Use
  Company Number: JP-SUN PHARMACEUTICAL INDUSTRIES LTD-2020RR-238681

PATIENT
  Age: 16 Year
  Sex: Male

DRUGS (5)
  1. MELPHALAN. [Suspect]
     Active Substance: MELPHALAN
     Indication: TRANSPLANT
     Dosage: 40 MILLIGRAM/SQ. METER, UNK, FOR 2 DAYS
     Route: 065
  2. AMPHOTERICIN B. [Suspect]
     Active Substance: AMPHOTERICIN B
     Indication: ACUTE MYELOID LEUKAEMIA
     Dosage: UNK
     Route: 065
  3. FLUDARABINE [Suspect]
     Active Substance: FLUDARABINE PHOSPHATE
     Indication: TRANSPLANT
     Dosage: 25 MILLIGRAM/SQ. METER, UNK, FOR 5 DAYS
     Route: 065
  4. TACROLIMUS. [Suspect]
     Active Substance: TACROLIMUS
     Indication: GRAFT VERSUS HOST DISEASE
     Dosage: UNK
     Route: 065
  5. METHOTREXATE. [Suspect]
     Active Substance: METHOTREXATE
     Indication: GRAFT VERSUS HOST DISEASE
     Dosage: UNK
     Route: 065

REACTIONS (6)
  - Fusarium infection [Unknown]
  - Therapy partial responder [Unknown]
  - Febrile neutropenia [Unknown]
  - Pancreatitis acute [Unknown]
  - Nephropathy toxic [Unknown]
  - Engraftment syndrome [Unknown]
